FAERS Safety Report 9236595 (Version 1)
Quarter: 2013Q2

REPORT INFORMATION
  Report Type: Spontaneous
  Country: US (occurrence: US)
  Receive Date: 20130417
  Receipt Date: 20130417
  Transmission Date: 20140414
  Serious: No
  Sender: FDA-Public Use
  Company Number: US-B.I. PHARMACEUTICALS,INC./RIDGEFIELD-2013-BI-09374BP

PATIENT
  Age: 79 Year
  Sex: Female

DRUGS (11)
  1. SPIRIVA [Suspect]
     Indication: CHRONIC OBSTRUCTIVE PULMONARY DISEASE
     Dosage: 18 MCG
     Route: 055
     Dates: start: 2008
  2. ADVAIR [Concomitant]
     Route: 055
  3. ALBUTEROL [Concomitant]
     Route: 055
  4. GLIPIZIDE [Concomitant]
     Indication: DIABETES MELLITUS
     Route: 048
  5. VITAMIN D [Concomitant]
     Route: 048
  6. METFORMIN [Concomitant]
     Indication: DIABETES MELLITUS
     Dosage: 2000 MG
     Route: 048
  7. NADOLOL [Concomitant]
     Dosage: 20 MG
     Route: 048
  8. PREDNISONE [Concomitant]
     Dosage: 40 MG
     Route: 048
  9. SIMVASTATIN [Concomitant]
     Indication: BLOOD CHOLESTEROL INCREASED
     Dosage: 20 MG
     Route: 048
  10. OMEPRAZOLE [Concomitant]
     Dosage: 20 MG
     Route: 048
  11. RECLAST [Concomitant]

REACTIONS (5)
  - Product quality issue [Recovered/Resolved]
  - Product quality issue [Recovered/Resolved]
  - Oesophageal candidiasis [Not Recovered/Not Resolved]
  - Hepatic steatosis [Not Recovered/Not Resolved]
  - Varices oesophageal [Recovered/Resolved]
